FAERS Safety Report 19707263 (Version 3)
Quarter: 2021Q4

REPORT INFORMATION
  Report Type: Spontaneous
  Country: SE (occurrence: SE)
  Receive Date: 20210817
  Receipt Date: 20211221
  Transmission Date: 20220303
  Serious: No
  Sender: FDA-Public Use
  Company Number: SE-PFIZER INC-202100932058

PATIENT

DRUGS (1)
  1. FRAGMIN [Suspect]
     Active Substance: DALTEPARIN SODIUM
     Dosage: UNK

REACTIONS (1)
  - Needle issue [Unknown]
